FAERS Safety Report 13287231 (Version 1)
Quarter: 2017Q1

REPORT INFORMATION
  Report Type: Spontaneous
  Country: FR (occurrence: FR)
  Receive Date: 20170302
  Receipt Date: 20170302
  Transmission Date: 20170428
  Serious: Yes (Hospitalization, Other)
  Sender: FDA-Public Use
  Company Number: FR-PFIZER INC-2017082286

PATIENT
  Age: 39 Year
  Sex: Female

DRUGS (5)
  1. CODOLIPRANE [Suspect]
     Active Substance: ACETAMINOPHEN\CODEINE PHOSPHATE
     Dosage: 1 BOX OF 16 DF, 2X/DAY IN THE MORNING AND IN THE EVENING
     Route: 048
     Dates: start: 20161101, end: 20161101
  2. XANAX [Suspect]
     Active Substance: ALPRAZOLAM
     Dosage: UNK
     Route: 048
     Dates: end: 20161029
  3. CODOLIPRANE [Suspect]
     Active Substance: ACETAMINOPHEN\CODEINE PHOSPHATE
     Dosage: 4 DF OR 8 DF, DAILY
     Route: 048
     Dates: start: 20161102
  4. LEXOMIL [Suspect]
     Active Substance: BROMAZEPAM
     Dosage: UNK
     Route: 048
     Dates: end: 20161029
  5. CODOLIPRANE [Suspect]
     Active Substance: ACETAMINOPHEN\CODEINE PHOSPHATE
     Dosage: 4 BOXES, DAILY
     Route: 048

REACTIONS (8)
  - Blood glucose increased [Unknown]
  - Pain [Unknown]
  - Agitation [Recovered/Resolved]
  - Urine output decreased [Unknown]
  - Thirst [Unknown]
  - Withdrawal syndrome [Recovered/Resolved]
  - Drug dependence [Unknown]
  - Partial seizures [Recovered/Resolved]

NARRATIVE: CASE EVENT DATE: 20161102
